FAERS Safety Report 7049305-9 (Version None)
Quarter: 2010Q4

REPORT INFORMATION
  Report Type: 
  Country: None (occurrence: None)
  Receive Date: 20101018
  Receipt Date: 20101006
  Transmission Date: 20110411
  Serious: Yes (Hospitalization)
  Sender: FDA-Public Use
  Company Number: GB-SANOFI-AVENTIS-2010SA060187

PATIENT
  Age: 64 Year

DRUGS (8)
  1. OXALIPLATIN [Suspect]
     Dates: start: 20100705, end: 20100705
  2. BEVACIZUMAB [Suspect]
     Route: 042
     Dates: start: 20100705, end: 20100705
  3. FOLINIC ACID [Suspect]
     Route: 042
     Dates: start: 20100705, end: 20100705
  4. FLUOROURACIL [Suspect]
     Route: 042
     Dates: start: 20100705, end: 20100705
  5. MEROPENEM [Concomitant]
     Dates: start: 20100920
  6. OMEPRAZOLE [Concomitant]
     Dates: start: 20080101
  7. QUININE [Concomitant]
     Dates: start: 20100701
  8. SODIUM FEREDETATE [Concomitant]
     Dates: start: 20100401

REACTIONS (3)
  - DEVICE RELATED INFECTION [None]
  - SKIN NECROSIS [None]
  - WOUND SECRETION [None]
